FAERS Safety Report 8381057-2 (Version None)
Quarter: 2012Q2

REPORT INFORMATION
  Report Type: 
  Country: None (occurrence: None)
  Receive Date: 20120523
  Receipt Date: 20120518
  Transmission Date: 20120825
  Serious: Yes (Disabling, Other)
  Sender: FDA-Public Use
  Company Number: US-PFIZER INC-2012112490

PATIENT
  Sex: Female
  Weight: 53.06 kg

DRUGS (23)
  1. SINGULAIR [Concomitant]
     Dosage: 10 MG, 1X/DAY
  2. FLOLAN [Concomitant]
     Dosage: UNK
  3. POTASSIUM [Concomitant]
     Dosage: 10 MEQ, 3X/DAY
  4. REVATIO [Suspect]
     Indication: PULMONARY HYPERTENSION
     Dosage: 20 MG, 3X/DAY
     Route: 048
  5. SODIUM CHLORIDE [Concomitant]
     Dosage: UNK
  6. ADVAIR DISKUS 100/50 [Concomitant]
     Dosage: UNK, 1X/DAY
  7. POTASSIUM [Concomitant]
     Dosage: 10 MEQ, 3X/DAY
  8. SYMBICORT [Concomitant]
     Dosage: TWO PUFFS, AS NEEDED
  9. REMODULIN [Concomitant]
     Dosage: UNK
  10. SODIUM CHLORIDE [Concomitant]
     Dosage: UNK
  11. OXYGEN [Concomitant]
     Dosage: 5 L, 1X/DAY
  12. VITAMIN D [Concomitant]
     Dosage: 50000 IU, WEEKLY
  13. NORVASC [Concomitant]
     Dosage: 5 MG, 1X/DAY
  14. NORVASC [Concomitant]
     Dosage: 5 MG, 1X/DAY
  15. SPIRONOLACTONE [Concomitant]
     Dosage: 25 MG, 1X/DAY
  16. REVATIO [Suspect]
     Dosage: UNK
  17. NEURONTIN [Concomitant]
     Dosage: 300 MG, 3X/DAY
  18. SINGULAIR [Concomitant]
     Dosage: 10 MG, 1X/DAY
  19. SPIRONOLACTONE [Concomitant]
     Dosage: 25 MG, 1X/DAY
  20. SYMBICORT [Concomitant]
     Dosage: TWO PUFFS, AS NEEDED
  21. VITAMIN D [Concomitant]
     Dosage: 50000 UNITS, WEEKLY
  22. FLOLAN [Concomitant]
     Dosage: UNK
  23. ADVAIR DISKUS 100/50 [Concomitant]
     Dosage: UNK, 1X/DAY

REACTIONS (4)
  - INSOMNIA [None]
  - NEUROPATHY PERIPHERAL [None]
  - PULMONARY HYPERTENSION [None]
  - PAIN [None]
